FAERS Safety Report 4535894-2 (Version None)
Quarter: 2004Q4

REPORT INFORMATION
  Report Type: 
  Country: None (occurrence: None)
  Receive Date: 20041223
  Receipt Date: 20041216
  Transmission Date: 20050328
  Serious: Yes (Other)
  Sender: FDA-Public Use
  Company Number: PHBS2004FR16928

PATIENT
  Sex: Male
  Weight: 3 kg

DRUGS (5)
  1. HYDROCHLOROTHIAZIDE,VALSARTAN [Suspect]
     Route: 064
  2. METHYLDOPA [Suspect]
     Route: 064
  3. PRAZOSIN HCL [Suspect]
     Route: 064
  4. LEVOTHYROXINE SODIUM [Suspect]
     Route: 064
  5. LYSINE ACETYLSALICYLATE [Suspect]
     Route: 064

REACTIONS (12)
  - BETA 2 MICROGLOBULIN INCREASED [None]
  - BLOOD CREATININE INCREASED [None]
  - CAESAREAN SECTION [None]
  - DRUG EXPOSURE DURING PREGNANCY [None]
  - FOETAL HEART RATE DECELERATION [None]
  - KIDNEY ENLARGEMENT [None]
  - KIDNEY MALFORMATION [None]
  - LIMB MALFORMATION [None]
  - RENAL FAILURE [None]
  - SKULL MALFORMATION [None]
  - SMALL FOR DATES BABY [None]
  - TALIPES [None]
